APPROVED DRUG PRODUCT: HYDROCHLOROTHIAZIDE
Active Ingredient: HYDROCHLOROTHIAZIDE
Strength: 12.5MG
Dosage Form/Route: CAPSULE;ORAL
Application: A203561 | Product #001 | TE Code: AB
Applicant: SCIEGEN PHARMACEUTICALS INC
Approved: Jan 14, 2019 | RLD: No | RS: No | Type: RX